FAERS Safety Report 5825888-9 (Version None)
Quarter: 2008Q3

REPORT INFORMATION
  Report Type: 
  Country: None (occurrence: None)
  Receive Date: 20080723
  Receipt Date: 20080707
  Transmission Date: 20090109
  Serious: Yes (Hospitalization)
  Sender: FDA-Public Use
  Company Number: B0529653A

PATIENT
  Age: 38 Year
  Sex: Female

DRUGS (4)
  1. AZATHIOPRINE         (FORMULATION UNKNOWN) (GENERIC) [Suspect]
     Indication: SYSTEMIC LUPUS ERYTHEMATOSUS
     Dosage: 50 MG / TWICE PER DAY
  2. PREDNISONE [Suspect]
     Indication: SYSTEMIC LUPUS ERYTHEMATOSUS
     Dosage: 10 MG / TWICE PER DAY
  3. ALBENDAZOLE (FORMULATION UNKNOWN) (GENERIC) [Suspect]
     Dosage: 400 MG / TWICE PER DAY / ORAL
     Route: 048
  4. HYDROXYCHLOROQUINE SULFATE [Concomitant]

REACTIONS (17)
  - BLOOD CULTURE POSITIVE [None]
  - CHEST X-RAY ABNORMAL [None]
  - CULTURE URINE POSITIVE [None]
  - CUSHINGOID [None]
  - DUODENITIS [None]
  - ENTEROCOCCAL INFECTION [None]
  - ESCHERICHIA INFECTION [None]
  - HAEMATEMESIS [None]
  - HYPOTENSION [None]
  - KLEBSIELLA INFECTION [None]
  - NEUTROPHIL PERCENTAGE INCREASED [None]
  - OCCULT BLOOD POSITIVE [None]
  - OESOPHAGITIS [None]
  - RESPIRATORY DISTRESS [None]
  - STRONGYLOIDIASIS [None]
  - THROMBOCYTOPENIA [None]
  - WHITE BLOOD CELL COUNT INCREASED [None]
